FAERS Safety Report 16149565 (Version 1)
Quarter: 2019Q2

REPORT INFORMATION
  Report Type: Spontaneous
  Country: US (occurrence: US)
  Receive Date: 20190402
  Receipt Date: 20190402
  Transmission Date: 20190711
  Serious: No
  Sender: FDA-Public Use
  Company Number: US-009507513-1903USA007526

PATIENT
  Age: 17 Year
  Sex: Female
  Weight: 71.66 kg

DRUGS (1)
  1. NEXPLANON [Suspect]
     Active Substance: ETONOGESTREL
     Indication: MENSTRUAL CYCLE MANAGEMENT
     Dosage: 1 IMPLANT
     Dates: start: 20180403, end: 20190108

REACTIONS (3)
  - Amenorrhoea [Not Recovered/Not Resolved]
  - Depression [Recovered/Resolved]
  - Product use in unapproved indication [Unknown]

NARRATIVE: CASE EVENT DATE: 20180403
